FAERS Safety Report 9820515 (Version 2)
Quarter: 2014Q1

REPORT INFORMATION
  Report Type: Report from Study
  Country: DE (occurrence: DE)
  Receive Date: 20140116
  Receipt Date: 20140116
  Transmission Date: 20141002
  Serious: Yes (Death, Life-Threatening, Hospitalization)
  Sender: FDA-Public Use
  Company Number: DE-PFIZER INC-2011242310

PATIENT
  Age: 59 Year
  Sex: Female

DRUGS (17)
  1. FRAGMIN [Suspect]
     Dosage: 5000 IU, UNK
     Route: 058
     Dates: start: 20110909
  2. GEMCITABINE HYDROCHLORIDE [Suspect]
  3. PREDNISOLONE [Suspect]
     Indication: DIARRHOEA
     Dosage: 150 MG, 1 DAY
     Route: 048
     Dates: start: 20110914
  4. PREDNISOLONE [Suspect]
     Dosage: 150 MG, DAILY
     Route: 042
     Dates: start: 20110930
  5. IPILIMUMAB [Suspect]
     Indication: MALIGNANT MELANOMA
     Dosage: 3 MG/KG, UNK
     Route: 042
     Dates: start: 20110719, end: 20110719
  6. IPILIMUMAB [Suspect]
     Dosage: 162 MG, UNK
     Dates: start: 20110902, end: 20110902
  7. ACETYLSALICYLIC ACID [Suspect]
     Indication: PERIPHERAL ARTERIAL OCCLUSIVE DISEASE
     Dosage: 100 MG, 1X/DAY
     Route: 048
     Dates: start: 19960701, end: 20111006
  8. ARIXTRA [Concomitant]
     Indication: VENOUS THROMBOSIS
     Dosage: UNK
     Dates: start: 20110720, end: 20110908
  9. ARIXTRA [Concomitant]
     Dosage: 2.5 MG, UNK
     Dates: start: 20110913
  10. ARIXTRA [Concomitant]
     Dosage: 2.5 MG, UNK
     Route: 058
     Dates: start: 20110922, end: 20110926
  11. ZOPICLONE [Concomitant]
     Dosage: 7.5 MG, UNK
     Route: 048
     Dates: start: 20110719
  12. PANTOZOL [Concomitant]
     Dosage: 40 MG, 2X/DAY
     Route: 041
     Dates: start: 20110907, end: 20110910
  13. PANTOZOL [Concomitant]
     Dosage: 40 MG, 2X/DAY
     Route: 048
     Dates: start: 20110911, end: 20110924
  14. PANTOZOL [Concomitant]
     Dosage: UNK
     Route: 042
     Dates: start: 20111006
  15. SALOFALK [Concomitant]
     Indication: DIARRHOEA
     Dosage: 500 MG DAILY
     Dates: start: 20110919, end: 20111011
  16. SALOFALK [Concomitant]
     Dosage: 1 G DAILY
  17. LACTOBACILLUS ACIDOPHILUS [Concomitant]
     Indication: DIARRHOEA
     Dosage: UNK
     Dates: start: 20110901, end: 20110926

REACTIONS (9)
  - Enterocolitis haemorrhagic [Fatal]
  - Neoplasm malignant [Fatal]
  - Cerebral haemorrhage [Fatal]
  - Respiratory failure [Fatal]
  - Pancytopenia [Unknown]
  - Diarrhoea haemorrhagic [Unknown]
  - Colitis [Recovering/Resolving]
  - Diarrhoea [Recovered/Resolved]
  - Vascular occlusion [Recovering/Resolving]
